FAERS Safety Report 9292717 (Version 1)
Quarter: 2013Q2

REPORT INFORMATION
  Report Type: Spontaneous
  Country: US (occurrence: None)
  Receive Date: 20130515
  Receipt Date: 20130515
  Transmission Date: 20140414
  Serious: Yes (Life-Threatening, Hospitalization, Other)
  Sender: FDA-Public Use
  Company Number: None

PATIENT
  Age: 32 Year
  Sex: Female
  Weight: 81.65 kg

DRUGS (1)
  1. PAROXETINE [Suspect]
     Indication: ANXIETY
     Dosage: 1 PILL  A DAY  AT NIGHT
     Dates: start: 20130418, end: 20130426

REACTIONS (3)
  - Impulse-control disorder [None]
  - Suicide attempt [None]
  - Incorrect dose administered [None]
